FAERS Safety Report 13807620 (Version 1)
Quarter: 2017Q3

REPORT INFORMATION
  Report Type: Spontaneous
  Country: US (occurrence: US)
  Receive Date: 20170728
  Receipt Date: 20170728
  Transmission Date: 20171127
  Serious: Yes (Other)
  Sender: FDA-Public Use
  Company Number: US-ELI_LILLY_AND_COMPANY-US201707007718

PATIENT
  Sex: Female

DRUGS (2)
  1. HUMULIN N [Suspect]
     Active Substance: INSULIN HUMAN
     Indication: PRODUCT USED FOR UNKNOWN INDICATION
     Dosage: 60 U, UNKNOWN
     Route: 065
     Dates: start: 2012
  2. HUMULIN N [Suspect]
     Active Substance: INSULIN HUMAN
     Dosage: 100-120 U, UNKNOWN
     Route: 065

REACTIONS (4)
  - Macular oedema [Not Recovered/Not Resolved]
  - Chronic kidney disease [Not Recovered/Not Resolved]
  - Blood glucose increased [Recovering/Resolving]
  - Drug ineffective [Unknown]
